FAERS Safety Report 7327071-7 (Version None)
Quarter: 2011Q1

REPORT INFORMATION
  Report Type: 
  Country: None (occurrence: None)
  Receive Date: 20110223
  Receipt Date: 20110214
  Transmission Date: 20110831
  Serious: Yes (Hospitalization)
  Sender: FDA-Public Use
  Company Number: 1000016393

PATIENT
  Age: 89 Year
  Sex: Male

DRUGS (14)
  1. METHYLPHENIDATE (METHYLPHENIDATE) (METHYLPHENIDATE) [Concomitant]
  2. METOPROLOL SUCCINATE [Concomitant]
  3. SEROQUEL (QUETIAPINE FUMARATE) (QUETIAPINE FUMARATE) [Concomitant]
  4. TPN (TPN) (LIQUID) (TPN) [Concomitant]
  5. FINASTERIDE (FINASTERIDE)(FINASTERIDE) [Concomitant]
  6. ARICEPT [Concomitant]
  7. OMEPRAZOLE [Concomitant]
  8. STALEVO(CARBIDOPA, LEVODOPA, ENTACAPONE)(CARBIDOPA, LEVODOPA, ENTACAPO [Concomitant]
  9. NAMENDA [Concomitant]
  10. OXYTROL (OXYBUTYNIN TRANSDERMAL)(OXYBUTYNIN TRANSDERMAL) [Concomitant]
  11. LEXAPRO [Suspect]
     Indication: DEPRESSION
     Dosage: 5 MG (5 MG, 1 IN 1 D), ORAL
     Route: 048
     Dates: start: 20080101, end: 20100907
  12. COZAAR [Concomitant]
  13. CLONIDINE [Concomitant]
  14. FLUDROCORTISONE ACETATE (FLUDROCORTISONE ACETATE)(FLUDROCORTISONE ACET [Concomitant]

REACTIONS (6)
  - ARRHYTHMIA [None]
  - ANTIBIOTIC RESISTANT STAPHYLOCOCCUS TEST POSITIVE [None]
  - URINARY TRACT INFECTION [None]
  - LETHARGY [None]
  - INSOMNIA [None]
  - HYPERSOMNIA [None]
